FAERS Safety Report 6901729-3 (Version None)
Quarter: 2010Q3

REPORT INFORMATION
  Report Type: 
  Country: None (occurrence: None)
  Receive Date: 20100803
  Receipt Date: 20080306
  Transmission Date: 20110219
  Serious: Yes (Other)
  Sender: FDA-Public Use
  Company Number: US-PFIZER INC-2008022060

PATIENT
  Sex: Female
  Weight: 53.636 kg

DRUGS (10)
  1. LYRICA [Suspect]
     Indication: FIBROMYALGIA
     Dosage: EVERY DAY
     Route: 048
     Dates: start: 20050101
  2. MERCAPTOPURINE [Concomitant]
     Route: 048
  3. ALL OTHER THERAPEUTIC PRODUCTS [Concomitant]
     Route: 048
  4. TRAZODONE [Concomitant]
     Route: 048
  5. KLONOPIN [Concomitant]
     Route: 048
  6. LIPITOR [Concomitant]
     Route: 048
  7. ATENOLOL [Concomitant]
     Route: 048
  8. ACETYLSALICYLIC ACID SRT [Concomitant]
     Route: 048
  9. PREVACID [Concomitant]
     Route: 048
  10. WELLBUTRIN [Concomitant]
     Route: 048

REACTIONS (5)
  - CONTACT LENS INTOLERANCE [None]
  - GASTROINTESTINAL DISORDER [None]
  - VISION BLURRED [None]
  - VISUAL IMPAIRMENT [None]
  - WEIGHT INCREASED [None]
